FAERS Safety Report 6675554-5 (Version None)
Quarter: 2010Q2

REPORT INFORMATION
  Report Type: 
  Country: None (occurrence: None)
  Receive Date: 20100409
  Receipt Date: 20100329
  Transmission Date: 20101027
  Serious: Yes (Other)
  Sender: FDA-Public Use
  Company Number: PHEH2008US09306

PATIENT
  Sex: Female

DRUGS (38)
  1. AREDIA [Suspect]
     Dosage: UNK
  2. ZOMETA [Suspect]
     Dosage: EVERY 4 WEEKS
     Dates: end: 20060701
  3. MIACALCIN [Concomitant]
  4. SYNTHROID [Concomitant]
     Dosage: 125 MCG, DAILY
  5. VITAMIN D [Concomitant]
     Dosage: 50000 IU, BID
  6. NEURONTIN [Concomitant]
     Dosage: 400 MG, QID
  7. DEXAMETHASONE [Concomitant]
     Dosage: 4 MG, 10 TABS WEEKLY
  8. REVLIMID [Concomitant]
     Dosage: 25 MG, DAILY
  9. BACTRIM [Concomitant]
     Dosage: 800MG-160MG, BID
  10. MELOXICAM [Concomitant]
     Dosage: 7.5 MG, DAILY
  11. CORTEF                                  /CAN/ [Concomitant]
     Dosage: 10 MG, BID
  12. ZITHROMAX [Concomitant]
     Dosage: 500 MG, DAILY
  13. DECADRON [Concomitant]
     Dosage: 4 MG, QID
  14. POTASSIUM [Concomitant]
     Dosage: 40 MEQ, UNK
  15. INFLUENZA VACCINE [Concomitant]
  16. ESTRADIOL [Concomitant]
  17. EFFEXOR [Concomitant]
  18. PROVIGIL [Concomitant]
  19. FOLIC ACID [Concomitant]
  20. K-DUR [Concomitant]
  21. LORAZEPAM [Concomitant]
  22. SIMVASTATIN [Concomitant]
  23. PROTONIX [Concomitant]
  24. LEXAPRO [Concomitant]
  25. QUESTRAN [Concomitant]
  26. PRILOSEC [Concomitant]
  27. DURAGESIC-100 [Concomitant]
  28. COUMADIN [Concomitant]
  29. ZANAFLEX [Concomitant]
  30. LASIX [Concomitant]
  31. LEVSINEX [Concomitant]
  32. XANAX [Concomitant]
  33. FLONASE [Concomitant]
  34. CARISOPRODOL [Concomitant]
  35. ROXICODONE [Concomitant]
  36. PROCRIT                            /00909301/ [Concomitant]
  37. CELEBREX [Concomitant]
  38. BLOOD TRANSFUSION, AUXILIARY PRODUCTS [Concomitant]

REACTIONS (57)
  - ANAEMIA [None]
  - ANHEDONIA [None]
  - ANXIETY [None]
  - ARTHRALGIA [None]
  - ASTHENIA [None]
  - BONE DISORDER [None]
  - BONE FRAGMENTATION [None]
  - BREAST CANCER RECURRENT [None]
  - CHOLANGITIS [None]
  - CORONARY ARTERY DISEASE [None]
  - COSTOCHONDRITIS [None]
  - DIARRHOEA [None]
  - DISABILITY [None]
  - ECCHYMOSIS [None]
  - EDENTULOUS [None]
  - ENDODONTIC PROCEDURE [None]
  - FALL [None]
  - FATIGUE [None]
  - GASTROOESOPHAGEAL REFLUX DISEASE [None]
  - GINGIVAL INFECTION [None]
  - GRANULOMATOUS LIVER DISEASE [None]
  - HYPERHIDROSIS [None]
  - HYPOCALCAEMIA [None]
  - HYPOKALAEMIA [None]
  - INJURY [None]
  - JOINT INJECTION [None]
  - MUSCLE SPASMS [None]
  - MUSCULOSKELETAL DISCOMFORT [None]
  - OEDEMA MOUTH [None]
  - OEDEMA PERIPHERAL [None]
  - OSTEOARTHRITIS [None]
  - OSTEONECROSIS [None]
  - OSTEOPENIA [None]
  - PAIN [None]
  - PAIN IN EXTREMITY [None]
  - PAIN IN JAW [None]
  - PALLOR [None]
  - PANCYTOPENIA [None]
  - PATHOLOGICAL FRACTURE [None]
  - PERIODONTAL DISEASE [None]
  - POLYDIPSIA [None]
  - POLYURIA [None]
  - RHABDOMYOLYSIS [None]
  - SACROILIITIS [None]
  - SHOULDER OPERATION [None]
  - SPINAL OSTEOARTHRITIS [None]
  - STRESS URINARY INCONTINENCE [None]
  - SYNOVIAL CYST [None]
  - TOOTH FRACTURE [None]
  - TOOTH LOSS [None]
  - TOOTHACHE [None]
  - TREMOR [None]
  - TYPE 1 DIABETES MELLITUS [None]
  - UMBILICAL HERNIA [None]
  - UMBILICAL HERNIA REPAIR [None]
  - VITAMIN D DEFICIENCY [None]
  - WEIGHT INCREASED [None]
